FAERS Safety Report 25962798 (Version 1)
Quarter: 2025Q4

REPORT INFORMATION
  Report Type: Spontaneous
  Country: US (occurrence: US)
  Receive Date: 20251027
  Receipt Date: 20251027
  Transmission Date: 20260117
  Serious: No
  Sender: SANDOZ
  Company Number: US-SANDOZ-SDZ2025US078387

PATIENT
  Sex: Female

DRUGS (4)
  1. BRIMONIDINE [Suspect]
     Active Substance: BRIMONIDINE TARTRATE
     Indication: Product used for unknown indication
     Dosage: TIW (STRENGTH: 0.2%)
     Route: 065
  2. CYCLOSPORINE [Suspect]
     Active Substance: CYCLOSPORINE
     Indication: Product used for unknown indication
     Dosage: UNK, QD, ONLY IN THE MORNING
     Route: 065
  3. CYCLOSPORINE [Suspect]
     Active Substance: CYCLOSPORINE
     Dosage: BID (TWICE A DAY)
     Route: 065
  4. ZADITOR [Suspect]
     Active Substance: KETOTIFEN FUMARATE
     Indication: Product used for unknown indication
     Dosage: SHE WAS NOT TAKING WHILE TAKING TRYPTYR AS SHE STOPPED USING IT FOR A WHILE
     Route: 065

REACTIONS (10)
  - Burning sensation [Unknown]
  - Swelling of eyelid [Unknown]
  - Dry skin [Unknown]
  - Pain [Unknown]
  - Chest discomfort [Unknown]
  - Tremor [Unknown]
  - Eye disorder [Unknown]
  - Dry eye [Not Recovered/Not Resolved]
  - Eye irritation [Not Recovered/Not Resolved]
  - Erythema [Unknown]
